FAERS Safety Report 7313533-5 (Version None)
Quarter: 2011Q1

REPORT INFORMATION
  Report Type: 
  Country: None (occurrence: None)
  Receive Date: 20110225
  Receipt Date: 20100817
  Transmission Date: 20110831
  Serious: Yes (Hospitalization, Other)
  Sender: FDA-Public Use
  Company Number: US-BAYER-200942869NA

PATIENT
  Sex: Female
  Weight: 126.98 kg

DRUGS (8)
  1. LORCET-HD [Concomitant]
     Indication: PAIN
     Dosage: UNK UNK, QID
     Route: 048
     Dates: start: 20090313
  2. YAZ [Suspect]
     Indication: ACNE
     Dosage: UNK, QD
     Dates: start: 20080301, end: 20090101
  3. PRILOSEC [Concomitant]
     Indication: GASTROOESOPHAGEAL REFLUX DISEASE
     Dosage: DAILY DOSE 20 MG
     Route: 048
     Dates: start: 20090313
  4. ACETAMINOPHEN [Concomitant]
     Indication: MUSCULOSKELETAL PAIN
     Dosage: UNK
     Dates: start: 20090313
  5. YASMIN [Suspect]
     Route: 048
  6. YAZ [Suspect]
     Indication: PREMENSTRUAL SYNDROME
     Dosage: UNK UNK, QD
     Route: 048
     Dates: start: 20000701, end: 20071001
  7. ALBUTEROL [Concomitant]
     Indication: ASTHMA
     Dosage: UNK
     Dates: start: 20090301
  8. OVCON-50 [Concomitant]
     Dosage: UNK
     Dates: start: 20090101, end: 20090101

REACTIONS (3)
  - CHOLECYSTITIS [None]
  - GALLBLADDER CHOLESTEROLOSIS [None]
  - CHOLECYSTITIS CHRONIC [None]
